FAERS Safety Report 20572841 (Version 1)
Quarter: 2022Q1

REPORT INFORMATION
  Report Type: Spontaneous
  Country: US (occurrence: US)
  Receive Date: 20220309
  Receipt Date: 20220309
  Transmission Date: 20220424
  Serious: No
  Sender: FDA-Public Use
  Company Number: US-PFIZER INC-202200364375

PATIENT
  Age: 38 Year
  Sex: Female

DRUGS (11)
  1. PAXLOVID [Suspect]
     Active Substance: NIRMATRELVIR\RITONAVIR
     Indication: COVID-19 treatment
     Dosage: UNK
     Dates: start: 20220304
  2. ALBUTEROL SULFATE [Concomitant]
     Active Substance: ALBUTEROL SULFATE
     Dosage: UNK
     Route: 045
     Dates: start: 20220304
  3. LUBIPROSTONE [Concomitant]
     Active Substance: LUBIPROSTONE
     Dosage: UNK
     Dates: start: 202011, end: 20220302
  4. OMEPRAZOLE [Concomitant]
     Active Substance: OMEPRAZOLE
     Dosage: UNK
     Dates: start: 202109, end: 20220302
  5. MUSHROOM 5 COMPLEX [Concomitant]
     Dosage: UNK
     Dates: start: 202104, end: 20220302
  6. GREEN TEA 5000 [Concomitant]
     Dosage: UNK
     Dates: start: 202104, end: 20220302
  7. VITAMIN C WITH ROSE HIPS [ASCORBIC ACID;ROSA CANINA] [Concomitant]
     Dosage: 500 MG
     Dates: start: 202104, end: 20220302
  8. LACTOBACILLUS ACIDOPHILUS [Concomitant]
     Active Substance: LACTOBACILLUS ACIDOPHILUS
     Dosage: UNK
     Dates: start: 202104, end: 20220302
  9. NIN JIOM PEI PA KOA [Concomitant]
     Active Substance: ELM
     Dosage: UNK
     Dates: start: 202202
  10. FISH OIL [Concomitant]
     Active Substance: FISH OIL
     Dosage: UNK (FISH OIL 1000MG WITH OMEGA-3 300MG)
     Dates: start: 202104, end: 20220302
  11. FOLIC ACID [Concomitant]
     Active Substance: FOLIC ACID
     Dosage: UNK (220 MCG - 665 MCG DFE)
     Dates: start: 202111, end: 20220302

REACTIONS (1)
  - Dysgeusia [Not Recovered/Not Resolved]

NARRATIVE: CASE EVENT DATE: 20220305
